FAERS Safety Report 22251159 (Version 1)
Quarter: 2023Q2

REPORT INFORMATION
  Report Type: Spontaneous
  Country: US (occurrence: None)
  Receive Date: 20230424
  Receipt Date: 20230424
  Transmission Date: 20230722
  Serious: Yes (Death)
  Sender: FDA-Public Use
  Company Number: None

PATIENT
  Sex: Female

DRUGS (2)
  1. BOTOX [Suspect]
     Active Substance: ONABOTULINUMTOXINA
     Indication: Migraine
     Dosage: 200 UNIT INJECTION??INJECT UP TO 200 UNITS IN THE MUSCLE EVERY 3 MONTHS AT PHYSICIAN OFFICE. DISCAR
     Route: 030
     Dates: start: 20180327, end: 20230419
  2. BOTOX [Suspect]
     Active Substance: ONABOTULINUMTOXINA
     Dosage: OTHER QUANTITY : 200 UNITS;?OTHER FREQUENCY : EVERY 3 MONTHS;?
     Route: 030

REACTIONS (1)
  - Death [None]
